FAERS Safety Report 19980287 (Version 1)
Quarter: 2021Q4

REPORT INFORMATION
  Report Type: Report from Study
  Country: None (occurrence: IL)
  Receive Date: 20211021
  Receipt Date: 20211021
  Transmission Date: 20220303
  Serious: Yes (Other)
  Sender: FDA-Public Use
  Company Number: IL-ABBVIE-20K-082-3445331-00

PATIENT
  Sex: Female

DRUGS (5)
  1. HUMIRA [Suspect]
     Active Substance: ADALIMUMAB
     Indication: Uveitis
     Dosage: FIRST LOADING DOSE ACCORDING TO PS PROTOCOL
     Route: 058
     Dates: start: 20200604, end: 202009
  2. HUMIRA [Suspect]
     Active Substance: ADALIMUMAB
     Route: 058
     Dates: start: 202101
  3. HUMIRA [Suspect]
     Active Substance: ADALIMUMAB
     Indication: Uveitis
     Route: 058
     Dates: start: 2020, end: 202010
  4. IUD NOS [Concomitant]
     Active Substance: COPPER OR LEVONORGESTREL
     Indication: Heavy menstrual bleeding
     Route: 015
  5. COVID-19 VACCINE [Concomitant]
     Indication: Prophylaxis
     Route: 030

REACTIONS (5)
  - Deafness unilateral [Unknown]
  - Polymenorrhoea [Recovered/Resolved]
  - Heavy menstrual bleeding [Recovering/Resolving]
  - Migraine [Recovering/Resolving]
  - Anaemia [Unknown]

NARRATIVE: CASE EVENT DATE: 20200101
